FAERS Safety Report 9675768 (Version 2)
Quarter: 2013Q4

REPORT INFORMATION
  Report Type: Spontaneous
  Country: JP (occurrence: JP)
  Receive Date: 20131107
  Receipt Date: 20131115
  Transmission Date: 20140711
  Serious: Yes (Other)
  Sender: FDA-Public Use
  Company Number: JP-PFIZER INC-2013316831

PATIENT
  Sex: Male

DRUGS (5)
  1. LYRICA [Suspect]
     Indication: PROCEDURAL PAIN
     Dosage: 75 MG, 2X/DAY
     Route: 048
     Dates: start: 2011
  2. CLARITHROMYCIN [Suspect]
     Indication: RHINITIS ALLERGIC
  3. MUCOSTA [Concomitant]
  4. MAGMITT [Concomitant]
  5. FLOMOX [Concomitant]
     Indication: RHINITIS

REACTIONS (4)
  - Off label use [Unknown]
  - Hypersensitivity [Recovering/Resolving]
  - Lip swelling [Unknown]
  - Rhinitis allergic [Unknown]
